FAERS Safety Report 8949803 (Version 1)
Quarter: 2012Q4

REPORT INFORMATION
  Report Type: 
  Country: GB (occurrence: GB)
  Receive Date: 20121206
  Receipt Date: 20121206
  Transmission Date: 20130627
  Serious: Yes (Hospitalization, Other)
  Sender: FDA-Public Use
  Company Number: GB-B.I. PHARMACEUTICALS,INC./RIDGEFIELD-2012-UK-01485UK

PATIENT
  Age: 79 Year
  Sex: Male

DRUGS (3)
  1. DABIGATRAN [Suspect]
     Indication: ATRIAL FIBRILLATION
     Dosage: 300 mg
     Route: 048
     Dates: start: 20120824, end: 20120912
  2. ASPIRIN [Concomitant]
     Indication: CEREBROVASCULAR ACCIDENT
     Dosage: 75 mg
     Route: 048
     Dates: start: 20100212
  3. ASPIRIN [Concomitant]
     Indication: ATRIAL FIBRILLATION

REACTIONS (2)
  - Rectal haemorrhage [Recovered/Resolved]
  - Gastrointestinal angiodysplasia [Unknown]
